FAERS Safety Report 5877947-2 (Version None)
Quarter: 2008Q3

REPORT INFORMATION
  Report Type: 
  Country: None (occurrence: None)
  Receive Date: 20080911
  Receipt Date: 20080908
  Transmission Date: 20090109
  Serious: Yes (Death)
  Sender: FDA-Public Use
  Company Number: B0535996A

PATIENT
  Age: 60 Year
  Sex: Male
  Weight: 57 kg

DRUGS (2)
  1. ALKERAN [Suspect]
     Indication: STEM CELL TRANSPLANT
     Route: 042
     Dates: start: 20080112, end: 20080113
  2. NEUTROGIN [Concomitant]
     Indication: DRUG USE FOR UNKNOWN INDICATION
     Dates: start: 20080116, end: 20080125

REACTIONS (7)
  - ATRIAL FIBRILLATION [None]
  - C-REACTIVE PROTEIN INCREASED [None]
  - COMA [None]
  - CYTOMEGALOVIRUS INFECTION [None]
  - ENCEPHALITIS VIRAL [None]
  - FEBRILE NEUTROPENIA [None]
  - PYREXIA [None]
